FAERS Safety Report 16076066 (Version 1)
Quarter: 2019Q1

REPORT INFORMATION
  Report Type: Spontaneous
  Country: US (occurrence: US)
  Receive Date: 20190315
  Receipt Date: 20190315
  Transmission Date: 20190418
  Serious: No
  Sender: FDA-Public Use
  Company Number: US-TEVA-2019-US-1019381

PATIENT
  Sex: Female

DRUGS (1)
  1. LAMOTRIGINE ACTAVIS EXTENDED RELEASE TABLETS [Suspect]
     Active Substance: LAMOTRIGINE
     Indication: MOOD SWINGS
     Route: 065
     Dates: start: 20181219

REACTIONS (4)
  - Drug effect decreased [Unknown]
  - Drug hypersensitivity [None]
  - Product substitution issue [Unknown]
  - Product use in unapproved indication [Unknown]
